FAERS Safety Report 7569383-8 (Version None)
Quarter: 2011Q2

REPORT INFORMATION
  Report Type: 
  Country: None (occurrence: None)
  Receive Date: 20110623
  Receipt Date: 20110617
  Transmission Date: 20111010
  Serious: Yes (Hospitalization)
  Sender: FDA-Public Use
  Company Number: US-MERCK-1104USA03776

PATIENT
  Age: 82 Year
  Sex: Female

DRUGS (3)
  1. RECLAST [Concomitant]
     Route: 065
     Dates: start: 20100817
  2. EVISTA [Concomitant]
     Route: 065
     Dates: start: 20020101
  3. FOSAMAX [Suspect]
     Route: 048
     Dates: start: 20020101, end: 20080101

REACTIONS (4)
  - DEEP VEIN THROMBOSIS [None]
  - DRUG INEFFECTIVE [None]
  - FALL [None]
  - FEMUR FRACTURE [None]
